FAERS Safety Report 5379380-9 (Version None)
Quarter: 2007Q3

REPORT INFORMATION
  Report Type: 
  Country: None (occurrence: None)
  Receive Date: 20070703
  Receipt Date: 20070628
  Transmission Date: 20080115
  Serious: Yes (Hospitalization)
  Sender: FDA-Public Use
  Company Number: E2020-01384-SPO-US

PATIENT
  Age: 91 Year
  Sex: Female

DRUGS (6)
  1. ARICEPT [Suspect]
     Indication: DEMENTIA
     Dosage: 5 MG, 1 IN 1 D,ORAL
     Route: 048
     Dates: start: 20070401
  2. BENTYL [Suspect]
     Indication: MUSCLE SPASMS
     Dosage: ORAL
     Route: 048
     Dates: start: 20070301
  3. GLAUCOMA MEDICATION (NOS) [Concomitant]
  4. XANAX [Concomitant]
  5. SYNTHROID [Concomitant]
  6. RESTORIL [Concomitant]

REACTIONS (5)
  - ANXIETY [None]
  - DRUG INTERACTION [None]
  - FALL [None]
  - HIP FRACTURE [None]
  - MANIA [None]
